FAERS Safety Report 5735503-0 (Version None)
Quarter: 2008Q2

REPORT INFORMATION
  Report Type: 
  Country: None (occurrence: None)
  Receive Date: 20080512
  Receipt Date: 20080430
  Transmission Date: 20081010
  Serious: Yes (Hospitalization)
  Sender: FDA-Public Use
  Company Number: US-PFIZER INC-2005026934

PATIENT
  Sex: Male
  Weight: 67 kg

DRUGS (10)
  1. SUTENT [Suspect]
     Indication: GASTROINTESTINAL STROMAL TUMOUR
     Route: 048
     Dates: start: 20041206, end: 20050125
  2. DURAGESIC-100 [Concomitant]
     Dates: start: 20041114, end: 20050913
  3. WELLBUTRIN [Concomitant]
     Route: 048
  4. XALATAN [Concomitant]
     Route: 047
  5. LOMOTIL [Concomitant]
     Route: 048
  6. NORCO [Concomitant]
     Route: 048
  7. NEXIUM [Concomitant]
     Route: 048
  8. WARFARIN SODIUM [Concomitant]
     Route: 048
     Dates: start: 20050106, end: 20050729
  9. COSOPT [Concomitant]
     Route: 047
  10. TYLENOL [Concomitant]
     Route: 048
     Dates: start: 20050118, end: 20050214

REACTIONS (1)
  - ANAL FISTULA [None]
